FAERS Safety Report 18514280 (Version 1)
Quarter: 2020Q4

REPORT INFORMATION
  Report Type: Spontaneous
  Country: US (occurrence: US)
  Receive Date: 20201117
  Receipt Date: 20201117
  Transmission Date: 20210114
  Serious: No
  Sender: FDA-Public Use
  Company Number: US-NALPROPION PHARMACEUTICALS INC.-2019-008972

PATIENT
  Age: 63 Year
  Sex: Female
  Weight: 100.23 kg

DRUGS (4)
  1. CONTRAVE [Suspect]
     Active Substance: BUPROPION HYDROCHLORIDE\NALTREXONE HYDROCHLORIDE
     Indication: WEIGHT CONTROL
     Dosage: 1 TAB, QD
     Route: 048
     Dates: start: 20191028, end: 20191104
  2. HYDROCHLOROTHIAZIDE. [Concomitant]
     Active Substance: HYDROCHLOROTHIAZIDE
     Indication: DIURETIC THERAPY
     Dosage: 25 MG, QD (STARTED OVER A YEAR AGO)
  3. BISOPROLOL FUMARATE. [Concomitant]
     Active Substance: BISOPROLOL FUMARATE
     Indication: HYPERTENSION
     Dosage: 5 MG, QD (STARTED OVER A YEAR AGO)
  4. LOVASTATIN. [Concomitant]
     Active Substance: LOVASTATIN
     Indication: BLOOD CHOLESTEROL INCREASED
     Dosage: 10 MG, QD (STARTED OVER A YEAR AGO)

REACTIONS (5)
  - Tinnitus [Recovering/Resolving]
  - Blood pressure increased [Unknown]
  - Headache [Unknown]
  - Palpitations [Unknown]
  - Erythema [Unknown]

NARRATIVE: CASE EVENT DATE: 20191029
